FAERS Safety Report 9159946 (Version 2)
Quarter: 2013Q3

REPORT INFORMATION
  Report Type: Spontaneous
  Country: US (occurrence: US)
  Receive Date: 20130313
  Receipt Date: 20130719
  Transmission Date: 20140515
  Serious: No
  Sender: FDA-Public Use
  Company Number: US-B.I. PHARMACEUTICALS,INC./RIDGEFIELD-2013-BI-06048BP

PATIENT
  Age: 61 Year
  Sex: Female
  Weight: 87 kg

DRUGS (12)
  1. TRADJENTA [Suspect]
     Indication: DIABETES MELLITUS
     Dosage: 5 MG
     Route: 048
     Dates: start: 20130204
  2. METOPROLOL [Concomitant]
     Dosage: 50 MG
     Route: 048
  3. LISINOPRIL [Concomitant]
     Dosage: 40 MG
     Route: 048
  4. GLYBURIDE [Concomitant]
     Dosage: 50 MG
     Route: 048
  5. VITAMIN B12 [Concomitant]
     Route: 048
  6. VITAMIN B12 [Concomitant]
     Dosage: 2500 MCG
  7. VITAMIN B12 [Concomitant]
     Dosage: STRENGTH : 100MCG/ML; DAILY DOSE: 1ML
  8. ASPIRIN [Concomitant]
     Dosage: 325 MG
     Route: 048
  9. ASPIRIN [Concomitant]
     Dosage: 81 MG
  10. METFORMIN [Concomitant]
     Dosage: 2000 MG
     Route: 048
  11. ZOCOR (SIMVASTATIN) [Concomitant]
     Dosage: 40 MG
  12. GLYBURIDE [Concomitant]

REACTIONS (1)
  - Epistaxis [Not Recovered/Not Resolved]
